FAERS Safety Report 5498175-9 (Version None)
Quarter: 2007Q4

REPORT INFORMATION
  Report Type: 
  Country: None (occurrence: None)
  Receive Date: 20071025
  Receipt Date: 20070409
  Transmission Date: 20080405
  Serious: No
  Sender: FDA-Public Use
  Company Number: A0646269A

PATIENT
  Age: 60 Year
  Sex: Female

DRUGS (9)
  1. ADVAIR DISKUS 100/50 [Suspect]
     Indication: ASTHMA
     Dosage: 1PUFF TWICE PER DAY
     Route: 055
     Dates: start: 20070402, end: 20070408
  2. BENADRYL [Concomitant]
  3. LISINOPRIL AND HYDROCHLOROTHIAZIDE [Concomitant]
  4. VYTORIN [Concomitant]
  5. PREDNISONE [Concomitant]
  6. GLUCOPHAGE [Concomitant]
  7. INSULIN [Concomitant]
  8. VITAMIN B-12 [Concomitant]
  9. FOLIC ACID [Concomitant]

REACTIONS (5)
  - EYE SWELLING [None]
  - FLUID RETENTION [None]
  - LOCAL SWELLING [None]
  - SINUS DISORDER [None]
  - WEIGHT INCREASED [None]
